FAERS Safety Report 6693142-1 (Version None)
Quarter: 2010Q2

REPORT INFORMATION
  Report Type: 
  Country: None (occurrence: None)
  Receive Date: 20100422
  Receipt Date: 20100409
  Transmission Date: 20101027
  Serious: Yes (Hospitalization)
  Sender: FDA-Public Use
  Company Number: US-WATSON-2010-05081

PATIENT
  Age: 74 Year
  Sex: Female

DRUGS (2)
  1. RISPERIDONE [Suspect]
     Indication: AGGRESSION
     Dosage: 1 MG, DAILY
     Route: 065
  2. CITALOPRAM HYDROBROMIDE [Suspect]
     Indication: DEPRESSION
     Dosage: 40 MG, DAILY
     Route: 065

REACTIONS (3)
  - DEHYDRATION [None]
  - RENAL FAILURE [None]
  - SEROTONIN SYNDROME [None]
